FAERS Safety Report 8084314-2 (Version None)
Quarter: 2012Q1

REPORT INFORMATION
  Report Type: 
  Country: None (occurrence: None)
  Receive Date: 20120128
  Receipt Date: 20110129
  Transmission Date: 20120608
  Serious: No
  Sender: FDA-Public Use
  Company Number: US-ABBOTT-11P-163-0701558-00

PATIENT
  Age: 68 Year
  Sex: Female

DRUGS (15)
  1. BACITRACIN [Concomitant]
     Indication: LACERATION
  2. EXCEDRINE [Concomitant]
     Indication: MIGRAINE
  3. MAXALT-MLT [Concomitant]
     Indication: MIGRAINE
  4. NEURONTIN [Concomitant]
     Indication: MIGRAINE
  5. KETOCONAZOLE [Concomitant]
     Indication: PSORIASIS
  6. UPRUISON OINTMENT [Concomitant]
     Indication: LACERATION
  7. CLARITIN [Concomitant]
     Indication: PRODUCT USED FOR UNKNOWN INDICATION
  8. DULERA INHALER [Concomitant]
     Indication: ASTHMA
  9. HUMIRA [Suspect]
     Indication: PSORIASIS
     Dosage: 40MG DAY 1, DAY 8, DAY 9
     Dates: start: 20110101
  10. CLOBETASOL PROPIONATE [Concomitant]
     Indication: PSORIASIS
  11. ZYRTEC [Concomitant]
     Indication: PRODUCT USED FOR UNKNOWN INDICATION
  12. BP MEDICATION [Concomitant]
     Indication: PRODUCT USED FOR UNKNOWN INDICATION
     Dosage: CHANGED RECENTLY
  13. ALLERGY SHOTS [Concomitant]
     Indication: PRODUCT USED FOR UNKNOWN INDICATION
  14. IBUPROFEN [Concomitant]
     Indication: PRODUCT USED FOR UNKNOWN INDICATION
  15. EFFEXOR [Concomitant]
     Indication: MIGRAINE

REACTIONS (2)
  - DEVICE MALFUNCTION [None]
  - INJECTION SITE HAEMATOMA [None]
